FAERS Safety Report 6253971-5 (Version None)
Quarter: 2009Q3

REPORT INFORMATION
  Report Type: 
  Country: None (occurrence: None)
  Receive Date: 20090702
  Receipt Date: 20090623
  Transmission Date: 20100115
  Serious: Yes (Hospitalization)
  Sender: FDA-Public Use
  Company Number: FR-BAYER-200921545GPV

PATIENT
  Age: 44 Year
  Sex: Female
  Weight: 55 kg

DRUGS (2)
  1. BETAFERON [Suspect]
     Indication: MULTIPLE SCLEROSIS
     Dosage: 0.25 MG/ML
     Route: 058
     Dates: start: 20050201
  2. LIORESAL [Concomitant]
     Indication: MULTIPLE SCLEROSIS
     Dosage: 3 TABLETS PER DAY TAKEN AT 3 SEPARATE TIMES PER DAY, FOR 30 DAYS
     Dates: start: 20031101

REACTIONS (2)
  - DERMO-HYPODERMITIS [None]
  - ERYSIPELAS [None]
